FAERS Safety Report 6790343-9 (Version None)
Quarter: 2010Q2

REPORT INFORMATION
  Report Type: 
  Country: None (occurrence: None)
  Receive Date: 20100624
  Receipt Date: 20100610
  Transmission Date: 20101027
  Serious: Yes (Other)
  Sender: FDA-Public Use
  Company Number: PHHY2009DE59572

PATIENT
  Sex: Female

DRUGS (6)
  1. AFINITOR [Suspect]
     Indication: RENAL CELL CARCINOMA
     Dosage: 10 MG DAILY
     Route: 048
     Dates: start: 20091101
  2. LEVOTHYROXINE SODIUM [Concomitant]
     Indication: THYROID DISORDER
     Dosage: 75 MG/ DAY
     Route: 048
     Dates: start: 20091101
  3. BISOPROLOL [Concomitant]
     Indication: HYPERTENSION
     Dosage: 2.5 MG/DAY
     Route: 048
     Dates: start: 20091101
  4. FORTECORTIN [Concomitant]
     Indication: RENAL CELL CARCINOMA
     Dosage: UNK
     Route: 048
     Dates: start: 20091101
  5. PANTOZOL [Concomitant]
     Indication: RENAL CELL CARCINOMA
     Dosage: 40 MG/DAY
     Route: 048
     Dates: start: 20091101
  6. ZOMETA [Concomitant]
     Dosage: UNK
     Dates: start: 20091101

REACTIONS (9)
  - CONCOMITANT DISEASE PROGRESSION [None]
  - EPILEPSY [None]
  - LUNG DISORDER [None]
  - LYMPHADENOPATHY MEDIASTINAL [None]
  - MALIGNANT NEOPLASM PROGRESSION [None]
  - METASTASES TO BONE [None]
  - OEDEMA [None]
  - PARTIAL SEIZURES [None]
  - TREMOR [None]
